FAERS Safety Report 9848586 (Version 2)
Quarter: 2014Q1

REPORT INFORMATION
  Report Type: Report from Study
  Country: US (occurrence: US)
  Receive Date: 20140128
  Receipt Date: 20140219
  Transmission Date: 20141002
  Serious: Yes (Hospitalization)
  Sender: FDA-Public Use
  Company Number: US-JNJFOC-20140110686

PATIENT
  Age: 62 Year
  Sex: Male

DRUGS (2)
  1. STELARA [Suspect]
     Indication: PSORIASIS
     Route: 058
     Dates: start: 201109
  2. STELARA [Suspect]
     Indication: PSORIASIS
     Route: 058
     Dates: start: 20131219

REACTIONS (8)
  - Pneumonia [Recovered/Resolved]
  - Oesophageal varices haemorrhage [Recovered/Resolved]
  - Loss of consciousness [Recovering/Resolving]
  - Hallucination [Unknown]
  - Abnormal loss of weight [Not Recovered/Not Resolved]
  - Skin exfoliation [Unknown]
  - Anxiety [Unknown]
  - Insomnia [Unknown]
